FAERS Safety Report 10093894 (Version 4)
Quarter: 2016Q1

REPORT INFORMATION
  Report Type: Spontaneous
  Country: US (occurrence: US)
  Receive Date: 20140421
  Receipt Date: 20160113
  Transmission Date: 20160525
  Serious: Yes (Other)
  Sender: FDA-Public Use
  Company Number: US-SA-2014SA027998

PATIENT
  Age: 89 Year
  Sex: Female
  Weight: 57 kg

DRUGS (4)
  1. ALLEGRA [Suspect]
     Active Substance: FEXOFENADINE HYDROCHLORIDE
     Indication: PERENNIAL ALLERGY
     Route: 048
     Dates: start: 20140227
  2. MIRALAX [Suspect]
     Active Substance: POLYETHYLENE GLYCOL 3350
     Indication: PRODUCT USED FOR UNKNOWN INDICATION
     Dosage: FREQUENCY- BEDTIME
     Route: 065
  3. ALLEGRA [Suspect]
     Active Substance: FEXOFENADINE HYDROCHLORIDE
     Indication: PERENNIAL ALLERGY
     Route: 048
  4. NASAL PREPARATIONS [Concomitant]
     Active Substance: UNSPECIFIED INGREDIENT
     Indication: MULTIPLE ALLERGIES

REACTIONS (7)
  - Nightmare [Unknown]
  - Somnolence [Unknown]
  - Choking [Unknown]
  - Drug ineffective [Unknown]
  - Incontinence [Unknown]
  - Dysgeusia [Unknown]
  - Wrong technique in product usage process [Unknown]
